FAERS Safety Report 9341633 (Version 1)
Quarter: 2013Q2

REPORT INFORMATION
  Report Type: Spontaneous
  Country: FR (occurrence: None)
  Receive Date: 20130606
  Receipt Date: 20130606
  Transmission Date: 20140414
  Serious: Yes (Other)
  Sender: FDA-Public Use
  Company Number: 2013-2304

PATIENT
  Age: 21 Year
  Sex: Female

DRUGS (4)
  1. DYSPORT [Suspect]
     Indication: MUSCLE SPASTICITY
     Dosage: 1000 UNITS (1000 UNITS, 1 IN 1 CYCLE (S) .
     Route: 030
     Dates: start: 20120712, end: 20120712
  2. TOPALGIC [Concomitant]
  3. DOLIPRANE [Concomitant]
  4. VENTOLINE [Concomitant]

REACTIONS (3)
  - Foetal death [None]
  - Pelvic pain [None]
  - Maternal drugs affecting foetus [None]
